FAERS Safety Report 21085445 (Version 1)
Quarter: 2022Q3

REPORT INFORMATION
  Report Type: Spontaneous
  Country: CN (occurrence: None)
  Receive Date: 20220715
  Receipt Date: 20220715
  Transmission Date: 20221026
  Serious: Yes (Hospitalization)
  Sender: FDA-Public Use
  Company Number: 2022A250629

PATIENT
  Age: 24472 Day
  Sex: Male
  Weight: 46 kg

DRUGS (1)
  1. OSIMERTINIB MESYLATE [Suspect]
     Active Substance: OSIMERTINIB MESYLATE
     Indication: Non-small cell lung cancer
     Route: 048
     Dates: start: 20220427, end: 20220707

REACTIONS (6)
  - Nausea [Recovering/Resolving]
  - Decreased appetite [Recovering/Resolving]
  - Hyponatraemia [Recovering/Resolving]
  - Hypochloraemia [Recovering/Resolving]
  - Diarrhoea [Recovering/Resolving]
  - Gingivitis [Recovering/Resolving]

NARRATIVE: CASE EVENT DATE: 20220622
